FAERS Safety Report 6296852-3 (Version None)
Quarter: 2009Q3

REPORT INFORMATION
  Report Type: 
  Country: None (occurrence: None)
  Receive Date: 20090804
  Receipt Date: 20090729
  Transmission Date: 20100115
  Serious: Yes (Life-Threatening, Hospitalization)
  Sender: FDA-Public Use
  Company Number: FR-TEVA-204004USA

PATIENT
  Sex: Male

DRUGS (6)
  1. BISELECT [Suspect]
     Dosage: 1 DOSAGE FORM
     Route: 048
     Dates: start: 20090306
  2. MYCOPHENOLATE MOFETIL [Suspect]
     Indication: IDIOPATHIC THROMBOCYTOPENIC PURPURA
     Route: 048
     Dates: start: 20070101, end: 20090128
  3. FUROSEMIDE [Concomitant]
     Route: 048
  4. FLUINDIONE [Concomitant]
     Dosage: 1 DOSAGE FORM,0.5 DF,
     Route: 048
  5. ESOMEPRAZOLE MAGNESIUM [Concomitant]
     Dosage: 1 DOSAGE FORM
     Route: 048
  6. ROSUVASTATIN CALCIUM [Concomitant]
     Dosage: 1 DOSAGE FORM
     Route: 048
     Dates: start: 20090227

REACTIONS (1)
  - INTERSTITIAL LUNG DISEASE [None]
